FAERS Safety Report 5261896-7 (Version None)
Quarter: 2007Q1

REPORT INFORMATION
  Report Type: 
  Country: None (occurrence: None)
  Receive Date: 20070310
  Receipt Date: 20070228
  Transmission Date: 20070707
  Serious: Yes (Hospitalization)
  Sender: FDA-Public Use
  Company Number: 2007UW04067

PATIENT
  Sex: Female
  Weight: 67.3 kg

DRUGS (5)
  1. SEROQUEL [Suspect]
     Indication: DEPRESSION
     Dosage: 100MG TO 300MG
     Dates: start: 20020601, end: 20050601
  2. SEROQUEL [Suspect]
     Indication: SCHIZOAFFECTIVE DISORDER
     Dosage: 100MG TO 300MG
     Dates: start: 20020601, end: 20050601
  3. GEODON [Concomitant]
     Dates: start: 20050701, end: 20051001
  4. RISPERDAL [Concomitant]
     Dates: end: 19990101
  5. ZYPREXA [Concomitant]
     Dosage: 2.5MG TO 5MG
     Dates: end: 19990101

REACTIONS (3)
  - CARDIAC OPERATION [None]
  - DIABETES MELLITUS [None]
  - INJURY [None]
